FAERS Safety Report 9054371 (Version 1)
Quarter: 2013Q1

REPORT INFORMATION
  Report Type: Spontaneous
  Country: US (occurrence: US)
  Receive Date: 20130208
  Receipt Date: 20130208
  Transmission Date: 20140127
  Serious: No
  Sender: FDA-Public Use
  Company Number: US-GLAXOSMITHKLINE-A0960795A

PATIENT
  Age: 61 Year
  Sex: Female

DRUGS (9)
  1. PAXIL [Suspect]
     Indication: DEPRESSION
     Dosage: 12.5MG PER DAY
     Route: 048
     Dates: start: 2003
  2. DEXLANSOPRAZOLE [Concomitant]
  3. VYTORIN [Concomitant]
  4. METANX [Concomitant]
  5. COREG CR [Concomitant]
  6. ASPIRIN [Concomitant]
  7. VITAMIN D [Concomitant]
  8. LISINOPRIL [Concomitant]
  9. AMLODIPINE [Concomitant]

REACTIONS (2)
  - Anxiety [Unknown]
  - Drug ineffective [Unknown]
